FAERS Safety Report 5145625-3 (Version None)
Quarter: 2006Q4

REPORT INFORMATION
  Report Type: 
  Country: None (occurrence: None)
  Receive Date: 20061102
  Receipt Date: 20061025
  Transmission Date: 20070319
  Serious: Yes (Other)
  Sender: FDA-Public Use
  Company Number: 231728

PATIENT
  Sex: Female

DRUGS (1)
  1. XOLAIR [Suspect]
     Indication: ASTHMA
     Dosage: 300 MG, SUBCUTANEOUS
     Route: 058
     Dates: start: 20060501

REACTIONS (5)
  - DEPRESSION [None]
  - FATIGUE [None]
  - HEADACHE [None]
  - LACRIMATION INCREASED [None]
  - PAIN [None]
